FAERS Safety Report 9481696 (Version 1)
Quarter: 2013Q3

REPORT INFORMATION
  Report Type: Spontaneous
  Country: US (occurrence: US)
  Receive Date: 20130828
  Receipt Date: 20130828
  Transmission Date: 20140515
  Serious: Yes (Other)
  Sender: FDA-Public Use
  Company Number: US-AMGEN-KDL217801

PATIENT
  Age: 48 Year
  Sex: Female

DRUGS (1)
  1. ENBREL [Suspect]
     Indication: PSORIASIS
     Dosage: UNK UNK, UNK
     Route: 065
     Dates: start: 20070303

REACTIONS (6)
  - Hypersensitivity [Unknown]
  - Rash [Unknown]
  - Eye swelling [Unknown]
  - Lip swelling [Unknown]
  - Fatigue [Unknown]
  - Injection site reaction [Unknown]
